FAERS Safety Report 12068845 (Version 2)
Quarter: 2016Q3

REPORT INFORMATION
  Report Type: Report from Study
  Country: SA (occurrence: SA)
  Receive Date: 20160211
  Receipt Date: 20160718
  Transmission Date: 20161109
  Serious: Yes (Other)
  Sender: FDA-Public Use
  Company Number: SA-PFIZER INC-2016069477

PATIENT

DRUGS (1)
  1. ALPROSTADIL. [Suspect]
     Active Substance: ALPROSTADIL
     Indication: SUBVALVULAR AORTIC STENOSIS
     Dosage: 0.05 TO 0.10 ?G/KG/MIN
     Route: 042

REACTIONS (3)
  - Apnoea [Unknown]
  - Hypokalaemia [Unknown]
  - Blood alkaline phosphatase increased [Unknown]
